FAERS Safety Report 7706472-9 (Version None)
Quarter: 2011Q3

REPORT INFORMATION
  Report Type: 
  Country: None (occurrence: None)
  Receive Date: 20110824
  Receipt Date: 20110812
  Transmission Date: 20111222
  Serious: Yes (Hospitalization)
  Sender: FDA-Public Use
  Company Number: US-BRISTOL-MYERS SQUIBB COMPANY-15540776

PATIENT
  Age: 53 Year
  Sex: Male

DRUGS (2)
  1. IPILIMUMAB [Suspect]
     Indication: MALIGNANT MELANOMA
     Dosage: NO OF COURSES=3, INTERRUPTED:29DEC2010
     Route: 042
     Dates: start: 20101118, end: 20101229
  2. PREDNISONE [Concomitant]
     Indication: HYPOPHYSITIS
     Dosage: 20 MG/DAY AS OF 15-APR-2011
     Route: 048
     Dates: start: 20110120

REACTIONS (5)
  - DEPRESSION [None]
  - OPTIC NEURITIS [None]
  - HYPOPHYSITIS [None]
  - VISION BLURRED [None]
  - BLINDNESS UNILATERAL [None]
